FAERS Safety Report 17827477 (Version 8)
Quarter: 2020Q4

REPORT INFORMATION
  Report Type: Spontaneous
  Country: US (occurrence: US)
  Receive Date: 20200527
  Receipt Date: 20201109
  Transmission Date: 20210113
  Serious: Yes (Hospitalization, Other)
  Sender: FDA-Public Use
  Company Number: US-TEVA-2020-US-1239026

PATIENT
  Age: 53 Year
  Sex: Male
  Weight: 57.15 kg

DRUGS (2)
  1. EPOPROSTENOL. [Suspect]
     Active Substance: EPOPROSTENOL
     Dosage: EPOPROSTENOL 32 NG PER KG PER MIN, EPOPROSTENOL 30 NG PER KG PER MIN, FREQUENCY CONTINUOUS
     Route: 042
     Dates: start: 20191101
  2. ADEMPAS [Concomitant]
     Active Substance: RIOCIGUAT
     Route: 065

REACTIONS (7)
  - Pain [Unknown]
  - Hospitalisation [Unknown]
  - Living in residential institution [Unknown]
  - Malaise [Recovered/Resolved]
  - Liver disorder [Unknown]
  - Abdominal pain upper [Unknown]
  - Ammonia increased [Unknown]

NARRATIVE: CASE EVENT DATE: 20200915
